FAERS Safety Report 19753778 (Version 2)
Quarter: 2025Q2

REPORT INFORMATION
  Report Type: Spontaneous
  Country: US (occurrence: US)
  Receive Date: 20210826
  Receipt Date: 20250510
  Transmission Date: 20250716
  Serious: No
  Sender: SANOFI AVENTIS
  Company Number: US-SA-SAC20210824000241

PATIENT
  Age: 70 Year
  Sex: Female
  Weight: 75.283 kg

DRUGS (17)
  1. DUPIXENT [Suspect]
     Active Substance: DUPILUMAB
     Indication: Asthma
     Dosage: 300 MG, QOW
     Route: 058
  2. COVID-19 VACCINE NOS [Suspect]
     Active Substance: COVID-19 VACCINE
     Dates: start: 20250422, end: 20250422
  3. VITAMINS NOS [Concomitant]
     Active Substance: VITAMINS
  4. OCUVITE + LUTEIN [Concomitant]
  5. CALCIUM [Concomitant]
     Active Substance: CALCIUM
  6. SPIKEVAX [Concomitant]
     Active Substance: CX-046684
  7. MONTELUKAST SODIUM [Concomitant]
     Active Substance: MONTELUKAST SODIUM
  8. AZELASTINE HYDROCHLORIDE [Concomitant]
     Active Substance: AZELASTINE HYDROCHLORIDE
  9. QVAR REDIHALER [Concomitant]
     Active Substance: BECLOMETHASONE DIPROPIONATE
  10. FLUTICASONE PROPIONATE [Concomitant]
     Active Substance: FLUTICASONE PROPIONATE
  11. MOXIFLOXACIN [Concomitant]
     Active Substance: MOXIFLOXACIN
  12. FLUCONAZOLE [Concomitant]
     Active Substance: FLUCONAZOLE
  13. AMOXICILLIN\CLAVULANIC ACID [Concomitant]
     Active Substance: AMOXICILLIN\CLAVULANIC ACID
  14. ASPIRIN [Concomitant]
     Active Substance: ASPIRIN
  15. MUCINEX [Concomitant]
     Active Substance: GUAIFENESIN
  16. AZELASTINE/FLUTICASONPROPIONAAT [Concomitant]
  17. FAMOTIDINE [Concomitant]
     Active Substance: FAMOTIDINE

REACTIONS (5)
  - Vaccination site erythema [Unknown]
  - Chills [Unknown]
  - Vaccination site pain [Unknown]
  - Hypersomnia [Unknown]
  - Product dose omission in error [Unknown]

NARRATIVE: CASE EVENT DATE: 20210811
